FAERS Safety Report 14942863 (Version 1)
Quarter: 2018Q2

REPORT INFORMATION
  Report Type: Spontaneous
  Country: GB (occurrence: GB)
  Receive Date: 20180528
  Receipt Date: 20180528
  Transmission Date: 20180711
  Serious: Yes (Other)
  Sender: FDA-Public Use
  Company Number: GB-MICRO LABS LIMITED-BB2018-00977

PATIENT
  Age: 83 Year
  Sex: Male
  Weight: 64 kg

DRUGS (11)
  1. TRIAMCINOLONE ACETONIDE. [Concomitant]
     Active Substance: TRIAMCINOLONE ACETONIDE
     Route: 055
     Dates: start: 20170731
  2. OTOMIZE [Concomitant]
     Active Substance: DEXAMETHASONE\NEOMYCIN SULFATE
     Dosage: NEOMYCIN/DEXAMETHASONE/ACETIC ACID: 1 SPRAY INT...
     Dates: start: 20171016, end: 20171113
  3. ALLOPURINOL. [Concomitant]
     Active Substance: ALLOPURINOL
     Dates: start: 20170731
  4. ATORVASTATIN [Concomitant]
     Active Substance: ATORVASTATIN
     Dates: start: 20170731
  5. LOSARTAN. [Suspect]
     Active Substance: LOSARTAN
     Dates: start: 20170731
  6. CERUMOL [Concomitant]
     Dosage: APPLY AS DIRECTED
     Dates: start: 20171115, end: 20171118
  7. INDAPAMIDE. [Suspect]
     Active Substance: INDAPAMIDE
     Dates: start: 20171115
  8. COCODAMOL [Concomitant]
     Active Substance: ACETAMINOPHEN\CODEINE PHOSPHATE
     Dosage: TAKE 1 OR 2 4 TIMES/DAY
     Dates: start: 20170731
  9. LERCANIDIPINE HYDROCHLORIDE [Concomitant]
     Active Substance: LERCANIDIPINE HYDROCHLORIDE
     Dates: start: 20170823
  10. DOXAZOSIN [Concomitant]
     Active Substance: DOXAZOSIN\DOXAZOSIN MESYLATE
     Dates: start: 20180110
  11. LORATADINE. [Concomitant]
     Active Substance: LORATADINE
     Dates: start: 20170731

REACTIONS (1)
  - Renal impairment [Recovered/Resolved]

NARRATIVE: CASE EVENT DATE: 20180110
